FAERS Safety Report 5477652-0 (Version None)
Quarter: 2007Q4

REPORT INFORMATION
  Report Type: 
  Country: None (occurrence: None)
  Receive Date: 20071002
  Receipt Date: 20070917
  Transmission Date: 20080405
  Serious: Yes (Other)
  Sender: FDA-Public Use
  Company Number: 161880ISR

PATIENT
  Age: 61 Year
  Sex: Male

DRUGS (7)
  1. BECLOMETHASONE DIPROPIONATE [Suspect]
     Dosage: 400 MCG (400 MCG,1 IN 1 D)
     Dates: start: 20040101
  2. FORMOTEROL FUMARATE [Suspect]
     Dosage: 12 MCG (12 MCG,1 IN 1 D)
     Dates: start: 20040101
  3. ISOSORBIDE MONONITRATE [Concomitant]
  4. ATENOLOL [Concomitant]
  5. INSULIN [Concomitant]
  6. METFORMIN [Concomitant]
  7. ACETYLSALICYLIC ACID [Concomitant]

REACTIONS (7)
  - ARTERIAL THERAPEUTIC PROCEDURE [None]
  - BRONCHOSPASM [None]
  - CORONARY ARTERY BYPASS [None]
  - DRUG INEFFECTIVE [None]
  - DYSPNOEA [None]
  - EMPHYSEMA [None]
  - NASOPHARYNGITIS [None]
